FAERS Safety Report 15241725 (Version 1)
Quarter: 2018Q3

REPORT INFORMATION
  Report Type: Spontaneous
  Country: FR (occurrence: FR)
  Receive Date: 20180805
  Receipt Date: 20180805
  Transmission Date: 20181010
  Serious: Yes (Hospitalization)
  Sender: FDA-Public Use
  Company Number: PHHY2018FR065649

PATIENT
  Age: 83 Year
  Sex: Female
  Weight: 81 kg

DRUGS (10)
  1. TAMOXIFENE CITRATE [Concomitant]
     Active Substance: TAMOXIFEN CITRATE
     Indication: PRODUCT USED FOR UNKNOWN INDICATION
     Dosage: UNK
     Route: 048
  2. DALACINE [Concomitant]
     Active Substance: CLINDAMYCIN
     Indication: PRODUCT USED FOR UNKNOWN INDICATION
     Dosage: 2.4 G, QD
     Route: 048
     Dates: start: 20180124
  3. KARDEGIC [Concomitant]
     Active Substance: ASPIRIN DL-LYSINE
     Indication: PRODUCT USED FOR UNKNOWN INDICATION
     Dosage: UNK
     Route: 048
  4. GENTAMICINE [Concomitant]
     Active Substance: GENTAMICIN
     Indication: PRODUCT USED FOR UNKNOWN INDICATION
     Dosage: 250 MG, QD
     Route: 048
     Dates: start: 20180119, end: 20180123
  5. AMOXICILLIN. [Suspect]
     Active Substance: AMOXICILLIN
     Indication: PRODUCT USED FOR UNKNOWN INDICATION
     Dosage: 12 G, QD
     Route: 048
     Dates: start: 20180119, end: 20180206
  6. HYZAAR [Concomitant]
     Active Substance: HYDROCHLOROTHIAZIDE\LOSARTAN POTASSIUM
     Indication: PRODUCT USED FOR UNKNOWN INDICATION
     Dosage: UNK
     Route: 048
  7. NOVOMIX [Concomitant]
     Active Substance: INSULIN ASPART
     Indication: PRODUCT USED FOR UNKNOWN INDICATION
     Dosage: UNK
     Route: 058
  8. DALACINE [Concomitant]
     Active Substance: CLINDAMYCIN
     Dosage: 2.4 G, QD
     Route: 048
     Dates: start: 20180131
  9. AMOXICILLIN. [Suspect]
     Active Substance: AMOXICILLIN
     Dosage: 2 G, QD
     Route: 048
     Dates: start: 20180206, end: 20180209
  10. PAROXETINE HYDROCHLORIDE. [Concomitant]
     Active Substance: PAROXETINE HYDROCHLORIDE
     Indication: PRODUCT USED FOR UNKNOWN INDICATION
     Dosage: UNK
     Route: 065

REACTIONS (1)
  - Acute kidney injury [Recovered/Resolved]

NARRATIVE: CASE EVENT DATE: 20180204
